FAERS Safety Report 8445304-0 (Version None)
Quarter: 2012Q2

REPORT INFORMATION
  Report Type: 
  Country: None (occurrence: None)
  Receive Date: 20120323
  Receipt Date: 20111026
  Transmission Date: 20120825
  Serious: Yes (Other)
  Sender: FDA-Public Use
  Company Number: 163-21880-11093810

PATIENT
  Age: 67 Year
  Sex: Female

DRUGS (6)
  1. DEXLANSOPRAZOLE (DEXLANSOLPRAZOLE) [Concomitant]
  2. ERGOCALCIFEROL [Concomitant]
  3. ZYRTEC [Concomitant]
  4. FLUTICASONE PROPIONATE [Concomitant]
  5. REVLIMID [Suspect]
     Indication: MYELODYSPLASTIC SYNDROME
     Dosage: 5 MG, EVERY 3 DAYS, 3 WEEKS ON, 1 WEEK OFF, PO
     Route: 048
     Dates: start: 20100701
  6. GUAIFENESIN W/CODEINE (CHERACOL /USA/) [Concomitant]

REACTIONS (3)
  - BLINDNESS TRANSIENT [None]
  - HEADACHE [None]
  - ABDOMINAL DISCOMFORT [None]
